FAERS Safety Report 24396811 (Version 1)
Quarter: 2024Q4

REPORT INFORMATION
  Report Type: Spontaneous
  Country: QA (occurrence: QA)
  Receive Date: 20241004
  Receipt Date: 20241004
  Transmission Date: 20250114
  Serious: Yes (Congenital Anomaly, Other)
  Sender: ELI LILLY AND CO
  Company Number: QA-ELI_LILLY_AND_COMPANY-QA202410000528

PATIENT

DRUGS (1)
  1. EMGALITY [Suspect]
     Active Substance: GALCANEZUMAB-GNLM
     Indication: Product used for unknown indication
     Dosage: UNK UNK, UNKNOWN
     Route: 065

REACTIONS (3)
  - Premature baby [Unknown]
  - Cleft palate [Unknown]
  - Foetal exposure during pregnancy [Recovered/Resolved]
